FAERS Safety Report 5483745-4 (Version None)
Quarter: 2007Q4

REPORT INFORMATION
  Report Type: 
  Country: None (occurrence: None)
  Receive Date: 20071009
  Receipt Date: 20071009
  Transmission Date: 20080405
  Serious: Yes (Hospitalization)
  Sender: FDA-Public Use
  Company Number: None

PATIENT
  Sex: Male
  Weight: 56.3 kg

DRUGS (8)
  1. CARBOPLATIN [Suspect]
     Dosage: 480 MG
  2. ALIMTA [Suspect]
     Dosage: 820 MG
  3. ASA BABY [Concomitant]
  4. CATAPRES [Concomitant]
  5. DEXAMETHASONE [Concomitant]
  6. FOLIC ACID [Concomitant]
  7. SYNTHROID [Concomitant]
  8. TOPROL-XL [Concomitant]

REACTIONS (10)
  - CONSTIPATION [None]
  - DYSPNOEA [None]
  - FEEDING TUBE COMPLICATION [None]
  - HAEMATEMESIS [None]
  - HAEMOPTYSIS [None]
  - NAUSEA [None]
  - OESOPHAGEAL STENOSIS [None]
  - ORAL INTAKE REDUCED [None]
  - PRODUCTIVE COUGH [None]
  - WEIGHT DECREASED [None]
